FAERS Safety Report 5054859-8 (Version None)
Quarter: 2006Q2

REPORT INFORMATION
  Report Type: 
  Country: None (occurrence: None)
  Receive Date: 20060614
  Receipt Date: 20060206
  Transmission Date: 20061013
  Serious: No
  Sender: FDA-Public Use
  Company Number: US200602001422

PATIENT
  Age: 61 Year
  Sex: Male

DRUGS (1)
  1. CIALIS [Suspect]
     Indication: ERECTILE DYSFUNCTION
     Dosage: 20 MG , AS NEEDED
     Dates: start: 20060116

REACTIONS (1)
  - THERAPEUTIC RESPONSE DECREASED [None]
